FAERS Safety Report 13471895 (Version 3)
Quarter: 2018Q1

REPORT INFORMATION
  Report Type: Spontaneous
  Country: US (occurrence: US)
  Receive Date: 20170424
  Receipt Date: 20180320
  Transmission Date: 20180508
  Serious: No
  Sender: FDA-Public Use
  Company Number: US-PFIZER INC-2017174539

PATIENT
  Age: 57 Year
  Sex: Female
  Weight: 90.7 kg

DRUGS (3)
  1. LASIX [Concomitant]
     Active Substance: FUROSEMIDE
     Indication: PERIPHERAL SWELLING
     Dosage: 40 MG, AS NEEDED(40 MG TABLET IN MORNING)
     Route: 048
  2. REVATIO [Suspect]
     Active Substance: SILDENAFIL CITRATE
     Indication: PULMONARY ARTERIAL HYPERTENSION
     Dosage: 20 MG, 3X/DAY
     Route: 048
  3. LASIX [Concomitant]
     Active Substance: FUROSEMIDE
     Dosage: 20 MG, AS NEEDED(20 MG TABLET AT NIGHT)
     Route: 048
     Dates: start: 2009

REACTIONS (7)
  - Myalgia [Unknown]
  - Fatigue [Unknown]
  - Rash [Recovered/Resolved]
  - Pain [Unknown]
  - Reaction to excipient [Unknown]
  - Arthralgia [Unknown]
  - Dyspnoea [Unknown]
